FAERS Safety Report 14391563 (Version 2)
Quarter: 2018Q1

REPORT INFORMATION
  Report Type: Spontaneous
  Country: FR (occurrence: FR)
  Receive Date: 20180116
  Receipt Date: 20180222
  Transmission Date: 20180509
  Serious: Yes (Hospitalization, Other)
  Sender: FDA-Public Use
  Company Number: PHHY2018FR004769

PATIENT
  Age: 76 Year
  Sex: Female
  Weight: 62 kg

DRUGS (2)
  1. MEKINIST [Suspect]
     Active Substance: TRAMETINIB DIMETHYL SULFOXIDE
     Indication: METASTATIC MALIGNANT MELANOMA
     Dosage: 2 DF, QD
     Route: 065
     Dates: start: 20171030, end: 20180110
  2. TAFINLAR [Suspect]
     Active Substance: DABRAFENIB MESYLATE
     Indication: METASTATIC MALIGNANT MELANOMA
     Dosage: 50 MG, BID (2 DF)
     Route: 065
     Dates: start: 20171030, end: 20180110

REACTIONS (8)
  - Encephalopathy [Unknown]
  - Aphasia [Unknown]
  - Gait disturbance [Unknown]
  - Ischaemic stroke [Unknown]
  - Fall [Unknown]
  - Dysarthria [Unknown]
  - Disorientation [Unknown]
  - Motor dysfunction [Unknown]

NARRATIVE: CASE EVENT DATE: 20180103
